FAERS Safety Report 13383156 (Version 1)
Quarter: 2017Q1

REPORT INFORMATION
  Report Type: Spontaneous
  Country: US (occurrence: US)
  Receive Date: 20170329
  Receipt Date: 20170329
  Transmission Date: 20170429
  Serious: Yes (Hospitalization, Other)
  Sender: FDA-Public Use
  Company Number: US-ASTRAZENECA-2017SE31139

PATIENT
  Sex: Female
  Weight: 88.5 kg

DRUGS (17)
  1. LOSARTAN. [Concomitant]
     Active Substance: LOSARTAN
     Indication: HYPERTENSION
     Route: 048
  2. SYNTHROID [Concomitant]
     Active Substance: LEVOTHYROXINE SODIUM
     Indication: THYROID DISORDER
     Dosage: 0.5 MG, DAILY
     Route: 048
  3. OMEPRAZOLE. [Suspect]
     Active Substance: OMEPRAZOLE
     Route: 048
     Dates: start: 201101
  4. BIOTIN [Concomitant]
     Active Substance: BIOTIN
     Indication: NAIL DISORDER
     Route: 048
  5. HYDROCHLOROTHIAZIDE. [Concomitant]
     Active Substance: HYDROCHLOROTHIAZIDE
     Indication: HYPERTENSION
     Route: 048
  6. POTASSIUM CHLORIDE. [Concomitant]
     Active Substance: POTASSIUM CHLORIDE
     Dosage: 2 TABLETS IN THE MORNING, AND 1 IN THE EVENING, 10 MEQ TWO TIMES A DAY
     Route: 048
  7. VITAMIN D [Concomitant]
     Active Substance: CHOLECALCIFEROL
     Dosage: 2000 IU IN THE MORNING AND 1000 IU IN THE EVENING
     Route: 048
     Dates: start: 201003
  8. TUDORZA PRESSAIR [Suspect]
     Active Substance: ACLIDINIUM BROMIDE
     Indication: ASTHMA
     Dosage: 400MCG 1 PUFF TWO TIMES A DAY
     Route: 055
     Dates: start: 201406
  9. ALENDRONATE [Concomitant]
     Active Substance: ALENDRONATE SODIUM
     Indication: BONE DENSITY ABNORMAL
     Route: 048
     Dates: start: 200904
  10. BIOTIN [Concomitant]
     Active Substance: BIOTIN
     Indication: HAIR DISORDER
     Route: 048
  11. CENTRUM SILVER VITAMIN [Concomitant]
     Dosage: DAILY
     Route: 048
  12. CLARITIN [Concomitant]
     Active Substance: LORATADINE
     Indication: NASAL CONGESTION
     Dosage: AS REQUIRED
     Route: 048
  13. SIMVASTATIN. [Concomitant]
     Active Substance: SIMVASTATIN
     Indication: BLOOD CHOLESTEROL ABNORMAL
     Route: 048
     Dates: start: 200811
  14. NASONEX [Concomitant]
     Active Substance: MOMETASONE FUROATE
     Dosage: 1 SPRAY TWICE A DAY
     Route: 045
  15. ZINC. [Concomitant]
     Active Substance: ZINC
     Indication: NASOPHARYNGITIS
     Dosage: 30.0MG AS REQUIRED
     Route: 048
  16. ASPIRIN AND DIPYRIDAMOLE [Concomitant]
     Active Substance: ASPIRIN\DIPYRIDAMOLE
     Indication: AMNESIA
     Dosage: 25 MG 200 MG TWO TIMES A DAY
     Route: 048
     Dates: start: 200409
  17. PROAIR HFA [Concomitant]
     Active Substance: ALBUTEROL SULFATE
     Indication: INHALATION THERAPY
     Dosage: 1 PUFF EVERY NOW AND THEN
     Route: 055

REACTIONS (9)
  - Onychoclasis [Unknown]
  - Amnesia [Unknown]
  - Hypoacusis [Unknown]
  - Alopecia [Unknown]
  - Device issue [Unknown]
  - Drug dose omission [Unknown]
  - Underdose [Unknown]
  - Transient ischaemic attack [Unknown]
  - Asthma [Unknown]
